FAERS Safety Report 17726414 (Version 1)
Quarter: 2020Q2

REPORT INFORMATION
  Report Type: Spontaneous
  Country: US (occurrence: US)
  Receive Date: 20200430
  Receipt Date: 20200430
  Transmission Date: 20200714
  Serious: No
  Sender: FDA-Public Use
  Company Number: US-TEVA-2020-US-1225177

PATIENT
  Sex: Female

DRUGS (15)
  1. DILTIAZEM. [Concomitant]
     Active Substance: DILTIAZEM
     Route: 065
  2. CALCIUM [Concomitant]
     Active Substance: CALCIUM
     Route: 065
  3. SINGULAIR [Concomitant]
     Active Substance: MONTELUKAST SODIUM
     Route: 065
  4. ALPRAZOLAM. [Concomitant]
     Active Substance: ALPRAZOLAM
     Route: 065
  5. COLACE [Concomitant]
     Active Substance: DOCUSATE SODIUM
     Route: 065
  6. PROSTIQ [Concomitant]
     Route: 065
  7. BENEFIBER [Concomitant]
     Active Substance: STARCH, WHEAT
     Route: 065
  8. CALTRATE [Concomitant]
     Active Substance: CALCIUM CARBONATE
     Route: 065
  9. MULTIVITAMIN [Concomitant]
     Active Substance: VITAMINS
     Route: 065
  10. BIOTIN [Concomitant]
     Active Substance: BIOTIN
     Route: 065
  11. PROBIOTIC [Concomitant]
     Active Substance: PROBIOTICS NOS
     Route: 065
  12. ASPIRIN. [Concomitant]
     Active Substance: ASPIRIN
     Route: 065
  13. AUSTEDO [Suspect]
     Active Substance: DEUTETRABENAZINE
     Indication: TARDIVE DYSKINESIA
     Dosage: 12 MG TABLET IN THE MORNING+9 MG TABLET TWICE DAILY
     Route: 048
     Dates: start: 20190423
  14. AZELASTINE. [Concomitant]
     Active Substance: AZELASTINE HYDROCHLORIDE
     Route: 065
  15. CLONAZEPAM. [Concomitant]
     Active Substance: CLONAZEPAM
     Route: 065

REACTIONS (1)
  - Sleep disorder [Unknown]
